FAERS Safety Report 6469744-4 (Version None)
Quarter: 2009Q4

REPORT INFORMATION
  Report Type: 
  Country: None (occurrence: None)
  Receive Date: 20091119
  Receipt Date: 20090727
  Transmission Date: 20100525
  Serious: Yes (Other)
  Sender: FDA-Public Use
  Company Number: WAES 0907USA04854

PATIENT
  Age: 92 Year
  Sex: Male

DRUGS (1)
  1. JANUVIA [Suspect]
     Indication: TYPE 2 DIABETES MELLITUS
     Dosage: PO
     Route: 048
     Dates: start: 20070101, end: 20070701

REACTIONS (2)
  - PANCREATITIS [None]
  - SINUSITIS [None]
